FAERS Safety Report 10491921 (Version 1)
Quarter: 2014Q4

REPORT INFORMATION
  Report Type: Spontaneous
  Country: US (occurrence: US)
  Receive Date: 20141002
  Receipt Date: 20141002
  Transmission Date: 20150528
  Serious: No
  Sender: FDA-Public Use
  Company Number: US-GLAXOSMITHKLINE-A1062084A

PATIENT
  Age: 70 Year
  Sex: Female

DRUGS (11)
  1. ETODOLAC. [Concomitant]
     Active Substance: ETODOLAC
  2. LOSARTAN [Concomitant]
     Active Substance: LOSARTAN
  3. ADVAIR HFA [Suspect]
     Active Substance: FLUTICASONE PROPIONATE\SALMETEROL XINAFOATE
     Indication: CHRONIC OBSTRUCTIVE PULMONARY DISEASE
     Dosage: 1PUFF TWICE PER DAY
     Route: 055
     Dates: start: 2013
  4. LEVOTHYROXINE [Concomitant]
     Active Substance: LEVOTHYROXINE
  5. TRAZODONE [Concomitant]
     Active Substance: TRAZODONE HYDROCHLORIDE
  6. GABAPENTIN. [Concomitant]
     Active Substance: GABAPENTIN
  7. ATENOLOL. [Concomitant]
     Active Substance: ATENOLOL
  8. POTASSIUM [Concomitant]
     Active Substance: POTASSIUM
  9. EYE VITE [Concomitant]
  10. LORAZEPAM. [Concomitant]
     Active Substance: LORAZEPAM
  11. ALEVE [Concomitant]
     Active Substance: NAPROXEN SODIUM

REACTIONS (2)
  - Muscle spasms [Recovered/Resolved]
  - Middle insomnia [Recovered/Resolved]

NARRATIVE: CASE EVENT DATE: 2013
